FAERS Safety Report 9927720 (Version 2)
Quarter: 2014Q1

REPORT INFORMATION
  Report Type: Report from Study
  Country: EE (occurrence: EE)
  Receive Date: 20140227
  Receipt Date: 20140312
  Transmission Date: 20141002
  Serious: Yes (Hospitalization)
  Sender: FDA-Public Use
  Company Number: EE-ROCHE-1351778

PATIENT
  Age: 48 Year
  Sex: Male
  Weight: 110 kg

DRUGS (4)
  1. OBINUTUZUMAB [Suspect]
     Indication: CHRONIC LYMPHOCYTIC LEUKAEMIA
     Dosage: LAST DOSE PRIOR TO SAE : 14/JAN/2014
     Route: 042
     Dates: start: 20140113
  2. BENDAMUSTINE [Suspect]
     Indication: CHRONIC LYMPHOCYTIC LEUKAEMIA
     Route: 065
  3. MICARDIS [Concomitant]
     Route: 048
     Dates: start: 2007
  4. ALLOPURINOL [Concomitant]
     Route: 065

REACTIONS (1)
  - Febrile neutropenia [Recovered/Resolved]
